FAERS Safety Report 6410506-1 (Version None)
Quarter: 2009Q4

REPORT INFORMATION
  Report Type: 
  Country: None (occurrence: None)
  Receive Date: 20091020
  Receipt Date: 20091020
  Transmission Date: 20100525
  Serious: Yes (Death)
  Sender: FDA-Public Use
  Company Number: None

PATIENT
  Sex: Male
  Weight: 90.7194 kg

DRUGS (1)
  1. CHANTIX [Suspect]
     Indication: SMOKING CESSATION THERAPY
     Dosage: PER INSTRUCTION
     Dates: start: 20070815, end: 20070905

REACTIONS (8)
  - ABNORMAL DREAMS [None]
  - ALCOHOL ABUSE [None]
  - ANGER [None]
  - ANHEDONIA [None]
  - COMPLETED SUICIDE [None]
  - DEPRESSION [None]
  - IMPAIRED WORK ABILITY [None]
  - SOCIAL AVOIDANT BEHAVIOUR [None]
